FAERS Safety Report 16952422 (Version 1)
Quarter: 2019Q4

REPORT INFORMATION
  Report Type: Spontaneous
  Country: US (occurrence: US)
  Receive Date: 20191023
  Receipt Date: 20191023
  Transmission Date: 20200122
  Serious: No
  Sender: FDA-Public Use
  Company Number: US-IBSA PHARMA-TIR-2019-0548

PATIENT
  Age: 61 Year
  Sex: Female
  Weight: 69.92 kg

DRUGS (2)
  1. IODINE SUPPLEMENT [Suspect]
     Active Substance: IODINE
     Indication: PRODUCT USED FOR UNKNOWN INDICATION
     Dates: start: 201905, end: 201905
  2. TIROSINT [Suspect]
     Active Substance: LEVOTHYROXINE SODIUM
     Indication: HYPOTHYROIDISM
     Dosage: 100MCG DAILY
     Route: 048
     Dates: start: 201903, end: 20190605

REACTIONS (10)
  - Insomnia [Unknown]
  - Urticaria [Unknown]
  - Scar [Unknown]
  - Pain [Unknown]
  - Pruritus [Unknown]
  - Dyspnoea [Unknown]
  - Skin burning sensation [Unknown]
  - Decreased appetite [Unknown]
  - Skin haemorrhage [Unknown]
  - Rash [Unknown]

NARRATIVE: CASE EVENT DATE: 201905
